FAERS Safety Report 17356424 (Version 2)
Quarter: 2020Q1

REPORT INFORMATION
  Report Type: Report from Study
  Country: US (occurrence: US)
  Receive Date: 20200131
  Receipt Date: 20200210
  Transmission Date: 20200409
  Serious: No
  Sender: FDA-Public Use
  Company Number: NVSC2020US025533

PATIENT
  Sex: Female

DRUGS (1)
  1. MAYZENT [Suspect]
     Active Substance: SIPONIMOD
     Indication: PRODUCT USED FOR UNKNOWN INDICATION
     Dosage: UNK
     Route: 065

REACTIONS (7)
  - Rash vesicular [Unknown]
  - Rash [Unknown]
  - Malaise [Unknown]
  - Nausea [Unknown]
  - Diet refusal [Unknown]
  - Varicella [Unknown]
  - Scar [Unknown]
